FAERS Safety Report 9275637 (Version 3)
Quarter: 2013Q2

REPORT INFORMATION
  Report Type: Report from Study
  Country: DE (occurrence: DE)
  Receive Date: 20130507
  Receipt Date: 20130625
  Transmission Date: 20140414
  Serious: Yes (Death, Other)
  Sender: FDA-Public Use
  Company Number: DE-CELGENEUS-062-21880-10050621

PATIENT
  Age: 68 Year
  Sex: Male

DRUGS (12)
  1. REVLIMID [Suspect]
     Indication: ACUTE MYELOID LEUKAEMIA
     Route: 048
     Dates: start: 20100419, end: 20100505
  2. PANTOZOL [Concomitant]
     Indication: ULCER
     Dosage: 40 MILLIGRAM
     Route: 065
  3. CONCOR [Concomitant]
     Indication: HYPERTENSION
     Dosage: 2.5 MILLIGRAM
     Route: 065
  4. ESIDRIX [Concomitant]
     Indication: HYPERTENSION
     Dosage: 25 MILLIGRAM
     Route: 065
  5. KALINOR RETARD [Concomitant]
     Indication: PROPHYLAXIS
     Dosage: 1800 MILLIGRAM
     Route: 065
  6. TAMSULOSIN [Concomitant]
     Indication: HYPERTENSION
     Dosage: .4 MILLIGRAM
     Route: 065
  7. TAMSULOSIN [Concomitant]
     Indication: PROSTATE CANCER
  8. BISOPROLOL [Concomitant]
     Indication: HYPERTENSION
     Dosage: 2.5 MILLIGRAM
     Route: 065
  9. HCT BETA [Concomitant]
     Indication: HYPERTENSION
     Dosage: 25 MILLIGRAM
     Route: 065
  10. TAVANIC [Concomitant]
     Indication: URINARY TRACT INFECTION
     Dosage: 500 MILLIGRAM
     Route: 065
  11. DELIX [Concomitant]
     Indication: HYPERTENSION
     Dosage: 2.5 MILLIGRAM
     Route: 065
  12. DECORTIN [Concomitant]
     Indication: IMMUNE SYSTEM DISORDER
     Dosage: 2.5 MILLIGRAM
     Route: 065

REACTIONS (2)
  - Acute myeloid leukaemia [Fatal]
  - Peripheral sensory neuropathy [Not Recovered/Not Resolved]
